FAERS Safety Report 25641356 (Version 3)
Quarter: 2025Q4

REPORT INFORMATION
  Report Type: Report from Study
  Country: CA (occurrence: CA)
  Receive Date: 20250804
  Receipt Date: 20251016
  Transmission Date: 20260117
  Serious: Yes (Hospitalization)
  Sender: ABBVIE
  Company Number: CA-ABBVIE-6399021

PATIENT
  Age: 82 Year
  Sex: Male

DRUGS (2)
  1. RINVOQ [Suspect]
     Active Substance: UPADACITINIB
     Indication: Ankylosing spondylitis
     Dosage: LAST ADMIN DATE- JUL 2025, FORM STRENGTH: 15 MG, EXTENDED RELEASE TABLET
     Route: 048
     Dates: start: 20250719
  2. RINVOQ [Suspect]
     Active Substance: UPADACITINIB
     Indication: Ankylosing spondylitis
     Dosage: FORM STRENGTH: 15 MG, EXTENDED RELEASE TABLET
     Route: 048
     Dates: start: 202508, end: 202509

REACTIONS (5)
  - Chronic obstructive pulmonary disease [Not Recovered/Not Resolved]
  - Arrhythmia [Recovered/Resolved]
  - Pleural effusion [Unknown]
  - Pulmonary oedema [Unknown]
  - Lung disorder [Unknown]

NARRATIVE: CASE EVENT DATE: 20250101
